FAERS Safety Report 9289943 (Version 1)
Quarter: 2013Q2

REPORT INFORMATION
  Report Type: Spontaneous
  Country: US (occurrence: US)
  Receive Date: 20130515
  Receipt Date: 20130515
  Transmission Date: 20140414
  Serious: Yes (Hospitalization)
  Sender: FDA-Public Use
  Company Number: US-JNJFOC-20130500184

PATIENT
  Age: 57 Year
  Sex: Female

DRUGS (1)
  1. DOXORUBICIN HYDROCHLORIDE (DOXIL) [Suspect]
     Indication: UTERINE CANCER
     Dosage: 40MG/M2 PER DOSE, 59 TO 60 MG FOR 6 DOSES CYCLICAL
     Route: 042

REACTIONS (2)
  - Pulmonary fibrosis [Recovering/Resolving]
  - Off label use [Unknown]
